FAERS Safety Report 5218110-8 (Version None)
Quarter: 2007Q1

REPORT INFORMATION
  Report Type: 
  Country: None (occurrence: None)
  Receive Date: 20061130
  Receipt Date: 20060901
  Transmission Date: 20070707
  Serious: Yes (Hospitalization)
  Sender: FDA-Public Use
  Company Number: US200609001877

PATIENT
  Age: 53 Year
  Sex: Female
  Weight: 83.4 kg

DRUGS (4)
  1. ZYPREXA [Suspect]
     Dosage: 10 MG, UNK
     Dates: start: 19970101, end: 20050101
  2. DEPAKOTE [Concomitant]
  3. BUPROPION HCL [Concomitant]
  4. HYDROCHLOROTHIAZIDE [Concomitant]

REACTIONS (2)
  - DIABETES MELLITUS [None]
  - HYPERTENSION [None]
